FAERS Safety Report 9639707 (Version 1)
Quarter: 2013Q4

REPORT INFORMATION
  Report Type: Spontaneous
  Country: FR (occurrence: FR)
  Receive Date: 20131023
  Receipt Date: 20131023
  Transmission Date: 20140711
  Serious: Yes (Hospitalization)
  Sender: FDA-Public Use
  Company Number: FR-009507513-1310FRA006463

PATIENT
  Age: 83 Year
  Sex: Female

DRUGS (12)
  1. JANUMET [Suspect]
     Dosage: 2 DF, QD
     Route: 048
     Dates: start: 2012, end: 20130916
  2. NOVO-NORM [Suspect]
     Dosage: UNK
     Route: 048
     Dates: start: 20130830, end: 20130916
  3. CARDENSIEL [Concomitant]
  4. LANTUS [Concomitant]
  5. NOVORAPID [Concomitant]
  6. TAHOR [Concomitant]
  7. KARDEGIC [Concomitant]
  8. SPECIAFOLDINE [Concomitant]
  9. BRILIQUE [Concomitant]
  10. EUPANTOL [Concomitant]
  11. LEXOMIL [Concomitant]
  12. FUROSEMIDE [Concomitant]

REACTIONS (2)
  - Fall [Recovered/Resolved]
  - Hypoglycaemia [Recovered/Resolved]
